FAERS Safety Report 12898074 (Version 1)
Quarter: 2016Q4

REPORT INFORMATION
  Report Type: Spontaneous
  Country: IT (occurrence: IT)
  Receive Date: 20161031
  Receipt Date: 20161031
  Transmission Date: 20170207
  Serious: Yes (Hospitalization, Other)
  Sender: FDA-Public Use
  Company Number: PHHY2016IT148706

PATIENT
  Age: 59 Year

DRUGS (2)
  1. PAROXETINE. [Interacting]
     Active Substance: PAROXETINE
     Indication: PRODUCT USED FOR UNKNOWN INDICATION
     Route: 065
  2. VALPROIC ACID SANDOZ [Suspect]
     Active Substance: VALPROIC ACID
     Indication: EPILEPSY
     Dosage: 900 MG, QD
     Route: 065

REACTIONS (3)
  - Pleurothotonus [Recovering/Resolving]
  - Parkinsonism [Recovering/Resolving]
  - Drug interaction [Unknown]
